FAERS Safety Report 8605098-2 (Version None)
Quarter: 2012Q3

REPORT INFORMATION
  Report Type: 
  Country: None (occurrence: None)
  Receive Date: 20120820
  Receipt Date: 20120814
  Transmission Date: 20120928
  Serious: No
  Sender: FDA-Public Use
  Company Number: US-PFIZER INC-2012198926

PATIENT

DRUGS (2)
  1. SUTENT [Suspect]
     Indication: METASTASES TO BREAST
  2. SUTENT [Suspect]
     Indication: METASTATIC RENAL CELL CARCINOMA
     Dosage: UNK

REACTIONS (2)
  - LOCALISED OEDEMA [None]
  - FACE OEDEMA [None]
